FAERS Safety Report 19036091 (Version 1)
Quarter: 2021Q1

REPORT INFORMATION
  Report Type: Spontaneous
  Country: US (occurrence: US)
  Receive Date: 20210321
  Receipt Date: 20210321
  Transmission Date: 20210420
  Serious: No
  Sender: FDA-Public Use
  Company Number: US-SA-2021SA093875

PATIENT
  Sex: Female

DRUGS (1)
  1. DUPIXENT [Suspect]
     Active Substance: DUPILUMAB
     Indication: DERMATITIS ATOPIC
     Dosage: 300MG/2ML
     Route: 058
     Dates: start: 20210219

REACTIONS (3)
  - Limb discomfort [Not Recovered/Not Resolved]
  - Tension [Recovered/Resolved]
  - Fatigue [Not Recovered/Not Resolved]
